FAERS Safety Report 23592521 (Version 1)
Quarter: 2024Q1

REPORT INFORMATION
  Report Type: Spontaneous
  Country: US (occurrence: None)
  Receive Date: 20240303
  Receipt Date: 20240303
  Transmission Date: 20240409
  Serious: Yes (Life-Threatening, Hospitalization)
  Sender: FDA-Public Use
  Company Number: None

PATIENT
  Age: 80 Year
  Sex: Male
  Weight: 110.25 kg

DRUGS (12)
  1. JARDIANCE [Suspect]
     Active Substance: EMPAGLIFLOZIN
     Indication: Glucose tolerance impaired
     Dosage: 1 TABLET ORAL
     Route: 048
     Dates: start: 20220620, end: 20240217
  2. METOPROLOL [Concomitant]
     Active Substance: METOPROLOL
  3. EZETIMIBE [Concomitant]
     Active Substance: EZETIMIBE
  4. ALLOPURINOL [Concomitant]
     Active Substance: ALLOPURINOL
  5. METFORMIN [Concomitant]
     Active Substance: METFORMIN HYDROCHLORIDE
  6. ATORVASTATIN [Concomitant]
     Active Substance: ATORVASTATIN
  7. LISINOPRIL [Concomitant]
     Active Substance: LISINOPRIL
  8. XARELTO [Concomitant]
     Active Substance: RIVAROXABAN
  9. Senior Multi-Vitamin [Concomitant]
  10. Coqu10 [Concomitant]
  11. VITAMIN D [Concomitant]
     Active Substance: VITAMIN D NOS
  12. VITAMIN B [Concomitant]
     Active Substance: VITAMIN B

REACTIONS (2)
  - Influenza like illness [None]
  - Necrotising fasciitis [None]

NARRATIVE: CASE EVENT DATE: 20240217
